FAERS Safety Report 5899256-8 (Version None)
Quarter: 2008Q3

REPORT INFORMATION
  Report Type: 
  Country: None (occurrence: None)
  Receive Date: 20080902
  Receipt Date: 20080602
  Transmission Date: 20090109
  Serious: Yes (Other)
  Sender: FDA-Public Use
  Company Number: KADN20080304

PATIENT
  Sex: Male

DRUGS (1)
  1. KADIAN [Suspect]

REACTIONS (1)
  - DRUG ABUSER [None]
